FAERS Safety Report 4444965-0 (Version None)
Quarter: 2004Q3

REPORT INFORMATION
  Report Type: 
  Country: None (occurrence: None)
  Receive Date: 20040908
  Receipt Date: 20040908
  Transmission Date: 20050211
  Serious: Yes (Other)
  Sender: FDA-Public Use
  Company Number: None

PATIENT
  Sex: Female
  Weight: 56.8 kg

DRUGS (12)
  1. NEOMYCIN [Suspect]
     Indication: AMMONIA INCREASED
     Dosage: 1000 MG PO Q6 HOURS
     Route: 048
     Dates: start: 20040801, end: 20040803
  2. NEOMYCIN [Suspect]
     Indication: HEPATIC FAILURE
     Dosage: 1000 MG PO Q6 HOURS
     Route: 048
     Dates: start: 20040801, end: 20040803
  3. NEOMYCIN [Suspect]
     Indication: URINARY TRACT INFECTION
     Dosage: 1000 MG PO Q6 HOURS
     Route: 048
     Dates: start: 20040801, end: 20040803
  4. LACTULOSE [Concomitant]
  5. DILANTIN [Concomitant]
  6. CLINDAMYCIN [Concomitant]
  7. PROTONIX [Concomitant]
  8. PROPRANOLOL [Concomitant]
  9. LOVENOX [Concomitant]
  10. M.V.I. [Concomitant]
  11. KCL TAB [Concomitant]
  12. VIT K [Concomitant]

REACTIONS (2)
  - CONFUSIONAL STATE [None]
  - DELIRIUM [None]
